FAERS Safety Report 7586513-2 (Version None)
Quarter: 2011Q3

REPORT INFORMATION
  Report Type: 
  Country: None (occurrence: None)
  Receive Date: 20110701
  Receipt Date: 20110620
  Transmission Date: 20111222
  Serious: Yes (Other)
  Sender: FDA-Public Use
  Company Number: CO-ROCHE-784348

PATIENT
  Age: 45 Year
  Sex: Female

DRUGS (3)
  1. AVASTIN [Suspect]
     Dosage: FREQUENCY: ONE MONTH INTERVAL.
     Route: 031
  2. RIBAVIRIN [Suspect]
     Indication: HEPATITIS C
     Dosage: DISCONTINUED.
     Route: 065
  3. PEGINTERFERON ALFA-2A [Suspect]
     Indication: HEPATITIS C
     Dosage: DISCONTINUED.
     Route: 065

REACTIONS (7)
  - RETINOPATHY [None]
  - RETINAL ISCHAEMIA [None]
  - RETINAL HAEMORRHAGE [None]
  - RETINAL VASCULAR DISORDER [None]
  - BLINDNESS UNILATERAL [None]
  - RETINAL VASCULAR OCCLUSION [None]
  - PERIPHLEBITIS [None]
